FAERS Safety Report 5531044-4 (Version None)
Quarter: 2007Q4

REPORT INFORMATION
  Report Type: 
  Country: None (occurrence: None)
  Receive Date: 20071130
  Receipt Date: 20071127
  Transmission Date: 20080405
  Serious: Yes (Other)
  Sender: FDA-Public Use
  Company Number: AU-ROXANE LABORATORIES, INC-2007-DE-07001GD

PATIENT

DRUGS (1)
  1. MORPHINE SULFATE [Suspect]
     Indication: PAIN
     Dosage: 2.5 MG - 5 MG (1MG/ML); IF VRS REMAINED }/=3, THEN 2 FURTHER DOSES OF 2.5 - 5 MG AT }/=5 MIN INTERVA
     Route: 042

REACTIONS (2)
  - HYPOTENSION [None]
  - RESPIRATORY RATE DECREASED [None]
